FAERS Safety Report 5251166-5 (Version None)
Quarter: 2007Q1

REPORT INFORMATION
  Report Type: 
  Country: None (occurrence: None)
  Receive Date: 20070228
  Receipt Date: 20060926
  Transmission Date: 20070707
  Serious: No
  Sender: FDA-Public Use
  Company Number: US-GLAXOSMITHKLINE-A0619391A

PATIENT
  Age: 44 Year
  Sex: Male
  Weight: 93.2 kg

DRUGS (4)
  1. LAMICTAL [Suspect]
     Indication: BIPOLAR DISORDER
     Dosage: 200MG TWICE PER DAY
     Route: 048
  2. ANAFRANIL [Concomitant]
  3. PROZAC [Concomitant]
  4. WELLBUTRIN [Concomitant]

REACTIONS (3)
  - CONTUSION [None]
  - ECCHYMOSIS [None]
  - HAEMATOMA [None]
